FAERS Safety Report 9957234 (Version 1)
Quarter: 2014Q1

REPORT INFORMATION
  Report Type: Report from Study
  Country: US (occurrence: US)
  Receive Date: 20140304
  Receipt Date: 20140304
  Transmission Date: 20141002
  Serious: Yes (Other)
  Sender: FDA-Public Use
  Company Number: US-ABBVIE-13P-163-1096646-00

PATIENT
  Sex: Female

DRUGS (2)
  1. HUMIRA [Suspect]
     Indication: PSORIASIS
     Dates: start: 2008, end: 2010
  2. HUMIRA [Suspect]
     Dates: start: 201301

REACTIONS (2)
  - Abdominal operation [Recovered/Resolved]
  - Psoriatic arthropathy [Recovered/Resolved]
